FAERS Safety Report 8231886-0 (Version None)
Quarter: 2012Q1

REPORT INFORMATION
  Report Type: 
  Country: None (occurrence: None)
  Receive Date: 20120323
  Receipt Date: 20120313
  Transmission Date: 20120608
  Serious: Yes (Hospitalization)
  Sender: FDA-Public Use
  Company Number: HU-ROCHE-789125

PATIENT
  Sex: Female
  Weight: 60 kg

DRUGS (3)
  1. HERCEPTIN [Suspect]
     Indication: BREAST CANCER
     Dosage: FORM: VIALSDATE OFLAST DOSE PRIOR TO SAE: 13 JAN 2011
     Route: 042
     Dates: start: 20100913, end: 20110707
  2. CARBOPLATIN [Suspect]
     Indication: BREAST CANCER
     Dosage: DOSE: 6 AUC, TOTAL DOSE: 760 MG, DATE OFLAST DOSE PRIOR TO SAE: 28 DEC  2010
     Route: 042
  3. DOCETAXEL [Suspect]
     Indication: BREAST CANCER
     Dosage: TOTAL DOSE: 130 MG, FORM: VIAL, DATE OF LAST DOSE PRIOR TO SAE: 28 DEC  2010
     Route: 042

REACTIONS (4)
  - MYOCARDIAL INFARCTION [None]
  - ELECTROCARDIOGRAM T WAVE INVERSION [None]
  - CHEST PAIN [None]
  - MYOCARDIAL ISCHAEMIA [None]
